FAERS Safety Report 24024260 (Version 12)
Quarter: 2025Q1

REPORT INFORMATION
  Report Type: Report from Study
  Country: CA (occurrence: CA)
  Receive Date: 20240627
  Receipt Date: 20250303
  Transmission Date: 20250408
  Serious: Yes (Other)
  Sender: TAKEDA
  Company Number: CA-TAKEDA-2024TUS061655

PATIENT
  Age: 4 Year
  Sex: Male

DRUGS (8)
  1. RURIOCTOCOG ALFA PEGOL [Suspect]
     Active Substance: RURIOCTOCOG ALFA PEGOL
     Indication: Factor VIII deficiency
     Dosage: 1000 INTERNATIONAL UNIT, Q2WEEKS
     Dates: start: 20240603
  2. RURIOCTOCOG ALFA PEGOL [Suspect]
     Active Substance: RURIOCTOCOG ALFA PEGOL
     Dosage: 1000 INTERNATIONAL UNIT, 2/WEEK
  3. RURIOCTOCOG ALFA PEGOL [Suspect]
     Active Substance: RURIOCTOCOG ALFA PEGOL
     Dosage: UNK UNK, 2/WEEK
  4. RURIOCTOCOG ALFA PEGOL [Suspect]
     Active Substance: RURIOCTOCOG ALFA PEGOL
     Dosage: 1000 INTERNATIONAL UNIT, 2/WEEK
  5. RURIOCTOCOG ALFA PEGOL [Suspect]
     Active Substance: RURIOCTOCOG ALFA PEGOL
     Dosage: 1000 INTERNATIONAL UNIT, 2/WEEK
  6. RURIOCTOCOG ALFA PEGOL [Suspect]
     Active Substance: RURIOCTOCOG ALFA PEGOL
     Dosage: 1000 INTERNATIONAL UNIT, Q2WEEKS
  7. RURIOCTOCOG ALFA PEGOL [Suspect]
     Active Substance: RURIOCTOCOG ALFA PEGOL
     Dosage: 1000 INTERNATIONAL UNIT, Q2WEEKS
  8. RURIOCTOCOG ALFA PEGOL [Suspect]
     Active Substance: RURIOCTOCOG ALFA PEGOL
     Dosage: 1000 INTERNATIONAL UNIT, Q2WEEKS

REACTIONS (15)
  - Contusion [Unknown]
  - Inappropriate schedule of product administration [Unknown]
  - Hypophagia [Unknown]
  - Poor venous access [Unknown]
  - Malaise [Recovering/Resolving]
  - Vomiting [Recovering/Resolving]
  - Product prescribing issue [Unknown]
  - Product use issue [Unknown]
  - Crying [Unknown]
  - Agitation [Unknown]
  - Dyspnoea [Unknown]
  - Nausea [Unknown]
  - Limb mass [Unknown]
  - Eye infection [Recovering/Resolving]
  - Viral infection [Unknown]

NARRATIVE: CASE EVENT DATE: 20240601
